FAERS Safety Report 9333241 (Version 1)
Quarter: 2013Q2

REPORT INFORMATION
  Report Type: Spontaneous
  Country: US (occurrence: US)
  Receive Date: 20130606
  Receipt Date: 20130606
  Transmission Date: 20140414
  Serious: Yes (Hospitalization)
  Sender: FDA-Public Use
  Company Number: US-OPTIMER PHARMACEUTICALS, INC.-20120159

PATIENT
  Age: 89 Year
  Sex: Female

DRUGS (2)
  1. DIFICID [Suspect]
     Indication: CLOSTRIDIAL INFECTION
     Dosage: 200 MG, UNK
     Route: 065
     Dates: start: 2011, end: 2011
  2. DIFICID [Suspect]
     Dosage: UNK
     Route: 065
     Dates: start: 2012

REACTIONS (2)
  - Clostridium difficile infection [Recovering/Resolving]
  - Disease recurrence [Recovering/Resolving]
